FAERS Safety Report 9232741 (Version 1)
Quarter: 2013Q1

REPORT INFORMATION
  Report Type: Spontaneous
  Country: US (occurrence: None)
  Receive Date: 20121031
  Receipt Date: 20121031
  Transmission Date: 20140127
  Serious: No
  Sender: FDA-Public Use
  Company Number: PHEH2012US011886

PATIENT
  Sex: Female

DRUGS (1)
  1. GILENYA (FTY) CAPSULE, 0.5 MG [Suspect]
     Dosage: 1 DF, QD, ORAL
     Route: 048
     Dates: start: 20111225

REACTIONS (2)
  - Tremor [None]
  - Therapeutic response delayed [None]
